FAERS Safety Report 8435551-6 (Version None)
Quarter: 2012Q2

REPORT INFORMATION
  Report Type: 
  Country: None (occurrence: None)
  Receive Date: 20120608
  Receipt Date: 20120531
  Transmission Date: 20120825
  Serious: Yes (Hospitalization, Other)
  Sender: FDA-Public Use
  Company Number: 2012SP029567

PATIENT
  Age: 54 Year
  Sex: Male

DRUGS (4)
  1. PEGETRON (PEGYLATED INTERFERON ALFA-2B W/ RIBAVIRIN) [Suspect]
     Indication: HEPATITIS C
     Dosage: 150 MCG; ;SC
     Route: 058
     Dates: start: 20110923
  2. INOVANE [Concomitant]
  3. VICTRELIS [Suspect]
     Indication: HEPATITIS C
     Dosage: PO
     Route: 048
     Dates: start: 20110923, end: 20120406
  4. NAPROSYN [Concomitant]

REACTIONS (2)
  - URINARY TRACT INFECTION [None]
  - CONVULSION [None]
